FAERS Safety Report 8581910-0 (Version None)
Quarter: 2012Q3

REPORT INFORMATION
  Report Type: 
  Country: None (occurrence: None)
  Receive Date: 20120809
  Receipt Date: 20120801
  Transmission Date: 20120928
  Serious: Yes (Other)
  Sender: FDA-Public Use
  Company Number: JP-VERTEX PHARMACEUTICALS INC.-AE-2012-011645

PATIENT
  Age: 71 Year
  Sex: Male

DRUGS (11)
  1. PEG-INTRON [Concomitant]
     Indication: HEPATITIS C
     Route: 058
     Dates: start: 20120413, end: 20120511
  2. JUZENTAIHOTO [Concomitant]
     Route: 048
  3. TOWARAT-CR [Concomitant]
     Route: 048
  4. TELAVIC (TELAPREVIR) [Suspect]
     Indication: HEPATITIS C
     Route: 048
     Dates: start: 20120413, end: 20120510
  5. PEG-INTRON [Concomitant]
     Route: 058
     Dates: start: 20120518, end: 20120720
  6. REBETOL [Concomitant]
     Route: 048
     Dates: start: 20120511, end: 20120517
  7. REBETOL [Concomitant]
     Indication: HEPATITIS C
     Route: 048
     Dates: start: 20120413, end: 20120503
  8. REBETOL [Concomitant]
     Route: 048
     Dates: start: 20120518, end: 20120720
  9. ACETAMINOPHEN [Concomitant]
     Route: 048
     Dates: start: 20120413
  10. TELAVIC (TELAPREVIR) [Suspect]
     Route: 048
     Dates: start: 20120511, end: 20120706
  11. REBETOL [Concomitant]
     Route: 048
     Dates: start: 20120504, end: 20120510

REACTIONS (1)
  - DRUG ERUPTION [None]
